FAERS Safety Report 16915669 (Version 1)
Quarter: 2019Q4

REPORT INFORMATION
  Report Type: Spontaneous
  Country: ES (occurrence: ES)
  Receive Date: 20191014
  Receipt Date: 20191014
  Transmission Date: 20200122
  Serious: Yes (Other)
  Sender: FDA-Public Use
  Company Number: ES-SAMSUNG BIOEPIS-SB-2019-29769

PATIENT
  Age: 33 Year
  Sex: Female

DRUGS (1)
  1. ONTRUZANT [Suspect]
     Active Substance: TRASTUZUMAB-DTTB
     Indication: BREAST CANCER
     Dosage: UNKNOWN
     Route: 065
     Dates: start: 20190919

REACTIONS (5)
  - Pruritus [Recovered/Resolved]
  - Vomiting [Recovered/Resolved]
  - Infusion related reaction [Recovered/Resolved]
  - Nausea [Recovered/Resolved]
  - Erythema [Recovered/Resolved]
